FAERS Safety Report 26052734 (Version 2)
Quarter: 2025Q4

REPORT INFORMATION
  Report Type: Spontaneous
  Country: EU (occurrence: EU)
  Receive Date: 20251117
  Receipt Date: 20251119
  Transmission Date: 20260117
  Serious: Yes (Hospitalization)
  Sender: SANDOZ
  Company Number: None

PATIENT
  Age: 55 Year
  Sex: Male
  Weight: 68 kg

DRUGS (6)
  1. CARBOPLATIN [Suspect]
     Active Substance: CARBOPLATIN
     Indication: Lung neoplasm malignant
     Dosage: 480 MG, CYCLIC, C4
     Route: 042
     Dates: start: 20250611, end: 20250812
  2. CETIRIZINE [Suspect]
     Active Substance: CETIRIZINE HYDROCHLORIDE
     Indication: Lung neoplasm malignant
     Dosage: 10 MG, CYCLIC C4
     Route: 048
     Dates: start: 20250611, end: 20250812
  3. METHYLPREDNISOLONE [Suspect]
     Active Substance: METHYLPREDNISOLONE
     Indication: Lung neoplasm malignant
     Dosage: 120 MG, CYCLIC,C4
     Route: 042
     Dates: start: 20250611, end: 20250812
  4. ONDANSETRON [Suspect]
     Active Substance: ONDANSETRON
     Indication: Lung neoplasm malignant
     Dosage: 8 MG, CYCLIC,C4
     Route: 048
     Dates: start: 20250611, end: 20250812
  5. PACLITAXEL [Suspect]
     Active Substance: PACLITAXEL
     Indication: Lung neoplasm malignant
     Dosage: 348 MG, CYCLIC, C4
     Route: 042
     Dates: start: 20250611, end: 20250812
  6. PEMBROLIZUMAB [Suspect]
     Active Substance: PEMBROLIZUMAB
     Indication: Lung neoplasm malignant
     Dosage: 200 MG, C4, CYCLIC
     Route: 042
     Dates: start: 20250611, end: 20250812

REACTIONS (3)
  - Oedema peripheral [Recovering/Resolving]
  - Rash maculo-papular [Recovering/Resolving]
  - Pyrexia [Recovered/Resolved]

NARRATIVE: CASE EVENT DATE: 20250812
